FAERS Safety Report 6920228-6 (Version None)
Quarter: 2010Q3

REPORT INFORMATION
  Report Type: 
  Country: None (occurrence: None)
  Receive Date: 20100809
  Receipt Date: 20100727
  Transmission Date: 20110219
  Serious: Yes (Other)
  Sender: FDA-Public Use
  Company Number: 201006031

PATIENT
  Age: 62 Year
  Sex: Male
  Weight: 81.6475 kg

DRUGS (4)
  1. TESTIM [Suspect]
     Indication: BLOOD TESTOSTERONE DECREASED
     Dosage: 50 MG, 1 IN 1 D, TRANSDERMAL
     Route: 062
     Dates: start: 20090319, end: 20100714
  2. SYNTHROID [Concomitant]
  3. MICARDIS [Concomitant]
  4. LIPITOR [Concomitant]

REACTIONS (2)
  - PROSTATE CANCER [None]
  - SCAR [None]
